FAERS Safety Report 23065220 (Version 1)
Quarter: 2023Q4

REPORT INFORMATION
  Report Type: Report from Study
  Country: US (occurrence: US)
  Receive Date: 20231013
  Receipt Date: 20231013
  Transmission Date: 20240109
  Serious: Yes (Other)
  Sender: FDA-Public Use
  Company Number: US-ABBVIE-5407858

PATIENT
  Sex: Female

DRUGS (1)
  1. RINVOQ [Suspect]
     Active Substance: UPADACITINIB
     Indication: Dermatitis atopic
     Route: 048
     Dates: start: 20230602

REACTIONS (13)
  - Rash [Unknown]
  - Acne [Unknown]
  - Groin pain [Unknown]
  - Erythema [Unknown]
  - Gait disturbance [Unknown]
  - Furuncle [Recovered/Resolved]
  - Pain [Recovered/Resolved]
  - Feeling hot [Recovered/Resolved]
  - Erythema [Recovered/Resolved]
  - Inflammation [Recovered/Resolved]
  - Rash [Recovered/Resolved]
  - Diabetes mellitus [Unknown]
  - Pain [Unknown]

NARRATIVE: CASE EVENT DATE: 20230101
